FAERS Safety Report 6761427-6 (Version None)
Quarter: 2010Q2

REPORT INFORMATION
  Report Type: 
  Country: None (occurrence: None)
  Receive Date: 20100607
  Receipt Date: 20100524
  Transmission Date: 20101027
  Serious: Yes (Other)
  Sender: FDA-Public Use
  Company Number: 602525

PATIENT
  Age: 72 Year
  Sex: Female

DRUGS (1)
  1. PACLITAXEL [Suspect]
     Dosage: 140 MG MILLIGRAM(S), INTRAVENOUS
     Route: 042
     Dates: start: 20100517, end: 20100517

REACTIONS (4)
  - ASPHYXIA [None]
  - BACK PAIN [None]
  - HYPERSENSITIVITY [None]
  - RASH [None]
